FAERS Safety Report 4790997-2 (Version None)
Quarter: 2005Q4

REPORT INFORMATION
  Report Type: 
  Country: None (occurrence: None)
  Receive Date: 20051005
  Receipt Date: 20050916
  Transmission Date: 20060501
  Serious: Yes (Other)
  Sender: FDA-Public Use
  Company Number: US_0508121345

PATIENT
  Age: 44 Year
  Sex: Male
  Weight: 84 kg

DRUGS (10)
  1. ZYPREXA [Suspect]
     Indication: ELECTROLYTE IMBALANCE
     Dosage: 20 MG/1 AT BEDTIME
     Dates: start: 19991018, end: 20030221
  2. RISPERIDONE [Concomitant]
  3. PERPHENAZINE [Concomitant]
  4. PENTA-TRIAMTERENE HCTZ [Concomitant]
  5. LOPID [Concomitant]
  6. FLUOXETINE [Concomitant]
  7. ZOLOFT [Concomitant]
  8. TRAZODONE HCL [Concomitant]
  9. ZESTRIL [Concomitant]
  10. ALLEGRA [Concomitant]

REACTIONS (5)
  - BLOOD GLUCOSE INCREASED [None]
  - DIABETES MELLITUS [None]
  - GLYCOSYLATED HAEMOGLOBIN INCREASED [None]
  - OBESITY [None]
  - WEIGHT INCREASED [None]
